FAERS Safety Report 8454677-4 (Version None)
Quarter: 2012Q2

REPORT INFORMATION
  Report Type: 
  Country: None (occurrence: None)
  Receive Date: 20120615
  Receipt Date: 20120615
  Transmission Date: 20120825
  Serious: No
  Sender: FDA-Public Use
  Company Number: None

PATIENT
  Age: 67 Year
  Sex: Female
  Weight: 73.4827 kg

DRUGS (1)
  1. CLARITHROMYCIN [Suspect]
     Indication: BRONCHITIS
     Dates: start: 20120515, end: 20120524

REACTIONS (4)
  - ABDOMINAL PAIN [None]
  - DYSGEUSIA [None]
  - FAECES DISCOLOURED [None]
  - MUSCLE SPASMS [None]
